FAERS Safety Report 11771956 (Version 2)
Quarter: 2017Q1

REPORT INFORMATION
  Report Type: Report from Study
  Country: JP (occurrence: JP)
  Receive Date: 20151124
  Receipt Date: 20170107
  Transmission Date: 20170428
  Serious: Yes (Life-Threatening, Other)
  Sender: FDA-Public Use
  Company Number: JP-AMGEN-JPNCT2015124739

PATIENT
  Age: 24 Month
  Sex: Female
  Weight: 10 kg

DRUGS (52)
  1. DARBEPOETIN ALFA [Suspect]
     Active Substance: DARBEPOETIN ALFA
     Dosage: 5 MUG, Q3WK
     Route: 042
     Dates: start: 20140914, end: 20140925
  2. ELCITONIN [Concomitant]
     Active Substance: ELCATONIN
     Indication: HYPERPARATHYROIDISM SECONDARY
     Dosage: UNK
     Route: 065
  3. ESCRE [Concomitant]
     Dosage: UNK
     Route: 054
  4. GENTACIN [Concomitant]
     Active Substance: GENTAMICIN SULFATE
     Dosage: UNK
     Route: 061
  5. INOVAN [Concomitant]
     Active Substance: DOPAMINE HYDROCHLORIDE
     Indication: RENAL APLASIA
     Dosage: UNK
     Route: 042
  6. CEFAMEZIN ALPHA [Concomitant]
     Active Substance: CEFAZOLIN SODIUM
     Indication: RENAL APLASIA
     Dosage: UNK
     Route: 065
  7. PRODIF [Concomitant]
     Active Substance: FOSFLUCONAZOLE
     Dosage: UNK
     Route: 042
  8. MEYLON [Concomitant]
     Active Substance: SODIUM BICARBONATE
     Indication: RENAL APLASIA
     Dosage: UNK
     Route: 042
  9. DARBEPOETIN ALFA [Suspect]
     Active Substance: DARBEPOETIN ALFA
     Dosage: 15 MUG, QWK
     Route: 042
     Dates: start: 20150102, end: 20150130
  10. L CARTIN [Concomitant]
     Active Substance: LEVOCARNITINE HYDROCHLORIDE
     Indication: MALNUTRITION
     Dosage: UNK
     Route: 048
  11. AMLODIPINE [Concomitant]
     Active Substance: AMLODIPINE BESYLATE
     Indication: HYPERTENSION
     Dosage: UNK
     Route: 048
  12. ZINC OXIDE SIMPLE OINTMENT [Concomitant]
     Active Substance: ZINC OXIDE
     Indication: ECZEMA
     Dosage: UNK
     Route: 061
  13. DAIKENCHUTO [Concomitant]
     Active Substance: HERBALS
     Dosage: UNK
     Route: 048
  14. KCL CORRECTIVE [Concomitant]
     Indication: RENAL APLASIA
     Dosage: UNK
     Route: 041
  15. KAYTWO N [Concomitant]
     Active Substance: MENATETRENONE
     Indication: MALNUTRITION
     Dosage: UNK
     Route: 042
  16. ATARAX-P [Concomitant]
     Active Substance: HYDROXYZINE HYDROCHLORIDE
     Indication: RENAL APLASIA
     Dosage: UNK
     Route: 065
  17. DARBEPOETIN ALFA [Suspect]
     Active Substance: DARBEPOETIN ALFA
     Dosage: 10 MUG, QWK
     Route: 042
     Dates: start: 20141030, end: 20141030
  18. HYALEIN [Concomitant]
     Active Substance: HYALURONATE SODIUM
     Dosage: UNK
     Route: 047
  19. KAYEXALATE [Concomitant]
     Active Substance: SODIUM POLYSTYRENE SULFONATE
     Indication: RENAL APLASIA
     Dosage: UNK
     Route: 048
  20. STERICLON [Concomitant]
     Active Substance: CHLORHEXIDINE GLUCONATE
     Indication: RENAL APLASIA
     Dosage: UNK
     Route: 065
  21. HEPARIN SODIUM. [Concomitant]
     Active Substance: HEPARIN SODIUM
     Indication: RENAL APLASIA
     Dosage: UNK
     Route: 065
  22. PLEAMIN P [Concomitant]
     Indication: MALNUTRITION
     Dosage: UNK
     Route: 041
  23. BIO-THREE [Concomitant]
     Active Substance: HERBALS
     Indication: DIARRHOEA
     Dosage: UNK
     Route: 048
  24. SODIUM BICARBONATE. [Concomitant]
     Active Substance: SODIUM BICARBONATE
     Indication: RENAL APLASIA
     Dosage: UNK
     Route: 048
  25. ELEJECT [Concomitant]
     Indication: MALNUTRITION
     Dosage: UNK
     Route: 041
  26. DARBEPOETIN ALFA [Suspect]
     Active Substance: DARBEPOETIN ALFA
     Dosage: 10 MUG, QWK
     Route: 042
     Dates: start: 20141212, end: 20141226
  27. DIOVAN [Concomitant]
     Active Substance: VALSARTAN
     Indication: HYPERTENSION
     Dosage: UNK
     Route: 048
  28. LOCOID [Concomitant]
     Active Substance: HYDROCORTISONE BUTYRATE
     Indication: ECZEMA
     Dosage: UNK
     Route: 061
  29. DARBEPOETIN ALFA [Suspect]
     Active Substance: DARBEPOETIN ALFA
     Dosage: 10 MUG, QWK
     Route: 042
     Dates: start: 20141106, end: 20141119
  30. FOIPAN [Concomitant]
     Active Substance: CAMOSTAT MESYLATE
     Indication: PANCREATIC CYST
     Dosage: UNK
     Route: 048
  31. PRECIPITATED CALCIUM CARBONATE [Concomitant]
     Active Substance: CALCIUM CARBONATE
     Indication: RENAL APLASIA
     Dosage: UNK
     Route: 048
  32. KIDMIN [Concomitant]
     Active Substance: AMINO ACIDS\ELECTROLYTES NOS
     Indication: RENAL APLASIA
     Dosage: UNK
     Route: 041
  33. VITAJECT [Concomitant]
     Active Substance: CYANOCOBALAMIN\PYRIDOXAMINE HYDROCHLORIDE\THIAMINE HYDROCHLORIDE
     Indication: MALNUTRITION
     Dosage: UNK
     Route: 042
  34. MIDAZOLAM [Concomitant]
     Active Substance: MIDAZOLAM HYDROCHLORIDE
     Dosage: UNK
     Route: 065
  35. DARBEPOETIN ALFA [Suspect]
     Active Substance: DARBEPOETIN ALFA
     Indication: RENAL APLASIA
     Dosage: 5 MUG, QWK
     Route: 042
     Dates: start: 20140814, end: 20140822
  36. TRICLORYL [Concomitant]
     Active Substance: TRICLOFOS SODIUM
     Dosage: UNK
     Route: 048
  37. HIRUDOID [Concomitant]
     Active Substance: GLYCOSAMINOGLYCANS
     Indication: ECZEMA
     Dosage: UNK
     Route: 061
  38. ADEROXAL [Concomitant]
     Active Substance: PYRIDOXAL PHOSPHATE
     Indication: MALNUTRITION
     Dosage: UNK
     Route: 048
  39. HUMULIN R [Concomitant]
     Active Substance: INSULIN HUMAN
     Indication: RENAL APLASIA
     Dosage: UNK
     Route: 065
  40. BROMHEXINE HYDROCHLORIDE [Concomitant]
     Active Substance: BROMHEXINE HYDROCHLORIDE
     Dosage: UNK
     Route: 055
  41. RINDERON VG [Concomitant]
     Active Substance: BETAMETHASONE VALERATE\GENTAMICIN SULFATE
     Indication: ECZEMA
     Dosage: UNK
     Route: 061
  42. NADIFLO [Concomitant]
     Indication: ECZEMA
     Dosage: UNK
     Route: 061
  43. RESTAMIN [Concomitant]
     Active Substance: DIPHENHYDRAMINE
     Indication: ECZEMA
     Dosage: UNK
     Route: 061
  44. DARBEPOETIN ALFA [Suspect]
     Active Substance: DARBEPOETIN ALFA
     Dosage: 5 MUG, QWK
     Route: 042
     Dates: start: 20141003, end: 20141017
  45. BISOLVON [Concomitant]
     Active Substance: BROMHEXINE HYDROCHLORIDE
     Indication: PANCREATIC CYST
     Dosage: UNK
     Route: 048
  46. AZUNOL [Concomitant]
     Active Substance: SODIUM GUALENATE
     Indication: ECZEMA
     Dosage: UNK
     Route: 061
  47. PREDONINE [Concomitant]
     Active Substance: PREDNISOLONE
     Dosage: UNK
     Route: 061
  48. VENETLIN [Concomitant]
     Active Substance: ALBUTEROL SULFATE
     Dosage: UNK
     Route: 055
  49. ULTIVA [Concomitant]
     Active Substance: REMIFENTANIL HYDROCHLORIDE
     Indication: RENAL APLASIA
     Dosage: UNK
  50. FENTANYL. [Concomitant]
     Active Substance: FENTANYL
     Indication: RENAL APLASIA
     Dosage: UNK
     Route: 065
  51. NICARDIPINE HYDROCHLORIDE. [Concomitant]
     Active Substance: NICARDIPINE HYDROCHLORIDE
     Indication: HYPERTENSION
     Dosage: UNK
     Route: 042
  52. ESLAX [Concomitant]
     Active Substance: ROCURONIUM BROMIDE
     Indication: RENAL APLASIA
     Dosage: UNK
     Route: 042

REACTIONS (13)
  - Blood alkaline phosphatase increased [Not Recovered/Not Resolved]
  - Gamma-glutamyltransferase increased [Not Recovered/Not Resolved]
  - Device related infection [Recovering/Resolving]
  - Infection [Recovering/Resolving]
  - White blood cell count decreased [Recovered/Resolved]
  - Seizure [Recovering/Resolving]
  - Haemorrhagic cyst [Recovering/Resolving]
  - Encephalopathy [Recovering/Resolving]
  - Bronchitis [Recovering/Resolving]
  - Gastrointestinal haemorrhage [Recovering/Resolving]
  - Blood lactate dehydrogenase increased [Recovering/Resolving]
  - Aspartate aminotransferase increased [Recovered/Resolved]
  - Shock haemorrhagic [Recovered/Resolved]

NARRATIVE: CASE EVENT DATE: 20140814
